FAERS Safety Report 21473444 (Version 1)
Quarter: 2022Q4

REPORT INFORMATION
  Report Type: Spontaneous
  Country: US (occurrence: US)
  Receive Date: 20221018
  Receipt Date: 20221018
  Transmission Date: 20230113
  Serious: No
  Sender: FDA-Public Use
  Company Number: US-La Jolla Pharmaceutical-2022TP000007

PATIENT
  Sex: Female

DRUGS (1)
  1. XERAVA [Suspect]
     Active Substance: ERAVACYCLINE DIHYDROCHLORIDE
     Indication: Osteomyelitis
     Route: 042

REACTIONS (2)
  - Rash [Recovered/Resolved]
  - Product use in unapproved indication [Recovered/Resolved]
